FAERS Safety Report 7539550-8 (Version None)
Quarter: 2011Q2

REPORT INFORMATION
  Report Type: 
  Country: None (occurrence: None)
  Receive Date: 20110610
  Receipt Date: 20110527
  Transmission Date: 20111010
  Serious: Yes (Life-Threatening)
  Sender: FDA-Public Use
  Company Number: DE-RANBAXY-2011RR-45183

PATIENT
  Age: 48 Year
  Sex: Female
  Weight: 90 kg

DRUGS (4)
  1. AZITHROMYCIN [Suspect]
     Indication: EAR INFECTION
     Dosage: 1 DF, UNK
     Route: 048
     Dates: start: 20101102, end: 20101104
  2. IBUPROFEN [Suspect]
     Dosage: 2400 MG, UNK
     Route: 048
     Dates: start: 20101103, end: 20101105
  3. IBUPROFEN [Suspect]
     Dosage: 600 MG, UNK
     Route: 048
     Dates: start: 20101101
  4. IBUPROFEN [Suspect]
     Dosage: 1800 MG, UNK
     Route: 048
     Dates: start: 20101102

REACTIONS (4)
  - HEPATOTOXICITY [None]
  - CHROMATURIA [None]
  - APPETITE DISORDER [None]
  - NAUSEA [None]
